FAERS Safety Report 9696907 (Version 2)
Quarter: 2013Q4

REPORT INFORMATION
  Report Type: Spontaneous
  Country: US (occurrence: US)
  Receive Date: 20131119
  Receipt Date: 20131119
  Transmission Date: 20140711
  Serious: No
  Sender: FDA-Public Use
  Company Number: US-GILEAD-2007-0013544

PATIENT
  Sex: Female
  Weight: 45.36 kg

DRUGS (16)
  1. LETAIRIS [Suspect]
     Indication: PULMONARY HYPERTENSION
     Route: 048
     Dates: start: 20070717
  2. RESTASIS [Concomitant]
     Route: 047
  3. REVATIO [Concomitant]
     Indication: PULMONARY HYPERTENSION
     Route: 048
  4. TRIAMTERENE/HCTZ [Concomitant]
     Route: 048
  5. TIMOPTIC XE [Concomitant]
     Route: 047
  6. ACTONEL [Concomitant]
     Route: 048
  7. LEXAPRO [Concomitant]
     Route: 048
  8. ALBUTEROL [Concomitant]
     Route: 055
  9. MURO OINT [Concomitant]
     Route: 047
  10. NEXIUM [Concomitant]
     Route: 048
  11. QUININE SULFATE [Concomitant]
     Route: 048
  12. ASPIRIN [Concomitant]
     Route: 048
  13. VITAMINE C [Concomitant]
     Route: 048
  14. VITAMINE B COMPLEX [Concomitant]
     Route: 048
  15. CALCIUM [Concomitant]
     Route: 048
  16. GLUCOSAMINE/CHONDROIT [Concomitant]
     Route: 048

REACTIONS (1)
  - Anaemia [Unknown]
